FAERS Safety Report 23508808 (Version 2)
Quarter: 2024Q1

REPORT INFORMATION
  Report Type: Spontaneous
  Country: US (occurrence: US)
  Receive Date: 20240209
  Receipt Date: 20240222
  Transmission Date: 20240410
  Serious: No
  Sender: FDA-Public Use
  Company Number: US-Calliditas-2024CAL00178

PATIENT
  Age: 51 Year
  Sex: Male
  Weight: 74 kg

DRUGS (1)
  1. TARPEYO [Suspect]
     Active Substance: BUDESONIDE
     Indication: Chronic kidney disease
     Route: 048
     Dates: start: 20230527

REACTIONS (4)
  - Drug ineffective [Unknown]
  - Hyperaesthesia teeth [Unknown]
  - White blood cell count increased [Unknown]
  - Muscle spasms [Not Recovered/Not Resolved]
